FAERS Safety Report 16118074 (Version 1)
Quarter: 2019Q1

REPORT INFORMATION
  Report Type: Spontaneous
  Country: US (occurrence: US)
  Receive Date: 20190326
  Receipt Date: 20190326
  Transmission Date: 20190418
  Serious: No
  Sender: FDA-Public Use
  Company Number: US-GLAXOSMITHKLINE-US2019GSK049729

PATIENT
  Age: 72 Year

DRUGS (1)
  1. BREO ELLIPTA [Suspect]
     Active Substance: FLUTICASONE FUROATE\VILANTEROL TRIFENATATE
     Indication: PRODUCT USED FOR UNKNOWN INDICATION
     Dosage: UNK
     Route: 055

REACTIONS (7)
  - Dyspepsia [Unknown]
  - Nausea [Unknown]
  - Gait disturbance [Unknown]
  - Swelling [Unknown]
  - Dyspnoea [Unknown]
  - Regurgitation [Unknown]
  - Vomiting [Unknown]
